FAERS Safety Report 20031602 (Version 1)
Quarter: 2021Q4

REPORT INFORMATION
  Report Type: Spontaneous
  Country: US (occurrence: US)
  Receive Date: 20211103
  Receipt Date: 20211103
  Transmission Date: 20220304
  Serious: No
  Sender: FDA-Public Use
  Company Number: US-ABBVIE-21K-163-4136449-00

PATIENT
  Sex: Female
  Weight: 76.136 kg

DRUGS (12)
  1. ORIAHNN [Suspect]
     Active Substance: ELAGOLIX SODIUM\ESTRADIOL\NORETHINDRONE
     Indication: Uterine leiomyoma
     Route: 048
     Dates: start: 202105
  2. ORIAHNN [Suspect]
     Active Substance: ELAGOLIX SODIUM\ESTRADIOL\NORETHINDRONE
     Indication: Uterine leiomyoma
     Route: 048
     Dates: start: 202105
  3. FOLIC ACID [Concomitant]
     Active Substance: FOLIC ACID
     Indication: Product used for unknown indication
  4. IRON [Concomitant]
     Active Substance: IRON
     Indication: Haemorrhage
  5. VITAMIN D [Concomitant]
     Active Substance: VITAMIN D NOS
     Indication: Product used for unknown indication
  6. VITAMIN B12 [Concomitant]
     Active Substance: CYANOCOBALAMIN
     Indication: Product used for unknown indication
  7. VITAMIN C [Concomitant]
     Active Substance: ASCORBIC ACID
     Indication: Product used for unknown indication
  8. BIOTIN [Concomitant]
     Active Substance: BIOTIN
     Indication: Product used for unknown indication
  9. GLUTATHIONE [Concomitant]
     Active Substance: GLUTATHIONE
     Indication: Product used for unknown indication
  10. LYSINE [Concomitant]
     Active Substance: LYSINE
     Indication: Product used for unknown indication
  11. MODERNA COVID-19 VACCINE [Concomitant]
     Active Substance: CX-024414
     Indication: COVID-19 immunisation
     Route: 030
     Dates: start: 20210915, end: 20210915
  12. MODERNA COVID-19 VACCINE [Concomitant]
     Active Substance: CX-024414
     Route: 030
     Dates: start: 20211019, end: 20211019

REACTIONS (6)
  - Intermenstrual bleeding [Not Recovered/Not Resolved]
  - Medication error [Unknown]
  - Stress [Unknown]
  - Alopecia [Recovering/Resolving]
  - Blood pressure increased [Recovering/Resolving]
  - Blood pressure increased [Unknown]

NARRATIVE: CASE EVENT DATE: 20210101
